FAERS Safety Report 20876471 (Version 1)
Quarter: 2022Q2

REPORT INFORMATION
  Report Type: Spontaneous
  Country: US (occurrence: None)
  Receive Date: 20220525
  Receipt Date: 20220525
  Transmission Date: 20220720
  Serious: No
  Sender: FDA-Public Use
  Company Number: None

PATIENT
  Age: 46 Year
  Sex: Female
  Weight: 69.4 kg

DRUGS (15)
  1. KISQALI [Suspect]
     Active Substance: RIBOCICLIB
     Indication: Breast cancer
     Dosage: 200MG 2XDAILY21D ORAL?
     Route: 048
     Dates: start: 202111
  2. AMOXICILLIN\CLAVULANATE POTASSIUM [Concomitant]
     Active Substance: AMOXICILLIN\CLAVULANATE POTASSIUM
  3. DULOXETINE HYDROCHLORIDE [Concomitant]
     Active Substance: DULOXETINE HYDROCHLORIDE
  4. FEXOFENADINE HCL [Concomitant]
     Active Substance: FEXOFENADINE HYDROCHLORIDE
  5. GABAPENTIN [Concomitant]
     Active Substance: GABAPENTIN
  6. FLONASE ALLERGY RELIEF [Concomitant]
     Active Substance: FLUTICASONE PROPIONATE
  7. GLUCOSAMINE CHOND CMP ADVANCED [Concomitant]
  8. LETROZOLE [Concomitant]
     Active Substance: LETROZOLE
  9. VITAMINS [Concomitant]
     Active Substance: VITAMINS
  10. OMEGA 3 [Concomitant]
     Active Substance: CAPSAICIN
  11. PAROXETINE HYDROCHLORIDE [Concomitant]
     Active Substance: PAROXETINE HYDROCHLORIDE
  12. PECTIN CIT-INOS-C-BIOFLAV-SO [Concomitant]
  13. TURKEY TAIL MUSHROOM [Concomitant]
  14. VITAMIN C [Concomitant]
     Active Substance: ASCORBIC ACID
  15. VITAMIN D3 [Concomitant]
     Active Substance: CHOLECALCIFEROL

REACTIONS (2)
  - Disease progression [None]
  - Diarrhoea [None]
